FAERS Safety Report 10982063 (Version 66)
Quarter: 2024Q3

REPORT INFORMATION
  Report Type: Report from Study
  Country: CA (occurrence: CA)
  Receive Date: 20150403
  Receipt Date: 20240716
  Transmission Date: 20241016
  Serious: Yes (Other)
  Sender: ROCHE
  Company Number: CA-ROCHE-1350337

PATIENT
  Age: 37 Year
  Sex: Female
  Weight: 47.0 kg

DRUGS (64)
  1. PERJETA [Suspect]
     Active Substance: PERTUZUMAB
     Indication: Breast cancer metastatic
     Dosage: START DATE: 15-JAN-2016
     Route: 042
     Dates: end: 20160115
  2. PERJETA [Suspect]
     Active Substance: PERTUZUMAB
     Route: 042
     Dates: start: 20160203, end: 20231213
  3. PERJETA [Suspect]
     Active Substance: PERTUZUMAB
     Route: 042
     Dates: start: 20160206
  4. PERJETA [Suspect]
     Active Substance: PERTUZUMAB
     Route: 042
  5. PERJETA [Suspect]
     Active Substance: PERTUZUMAB
     Route: 042
  6. PERJETA [Suspect]
     Active Substance: PERTUZUMAB
     Route: 042
  7. PERJETA [Suspect]
     Active Substance: PERTUZUMAB
     Route: 042
  8. PERJETA [Suspect]
     Active Substance: PERTUZUMAB
     Route: 042
  9. PERJETA [Suspect]
     Active Substance: PERTUZUMAB
     Route: 042
  10. PERJETA [Suspect]
     Active Substance: PERTUZUMAB
     Route: 042
  11. PERJETA [Suspect]
     Active Substance: PERTUZUMAB
     Route: 042
  12. PERJETA [Suspect]
     Active Substance: PERTUZUMAB
     Route: 042
  13. PERJETA [Suspect]
     Active Substance: PERTUZUMAB
     Route: 042
  14. PERJETA [Suspect]
     Active Substance: PERTUZUMAB
     Route: 042
  15. PERJETA [Suspect]
     Active Substance: PERTUZUMAB
     Route: 042
  16. PERJETA [Suspect]
     Active Substance: PERTUZUMAB
     Route: 042
  17. PERJETA [Suspect]
     Active Substance: PERTUZUMAB
     Route: 042
  18. PERJETA [Suspect]
     Active Substance: PERTUZUMAB
     Route: 042
  19. PERJETA [Suspect]
     Active Substance: PERTUZUMAB
     Route: 042
  20. PERJETA [Suspect]
     Active Substance: PERTUZUMAB
     Route: 042
  21. PERJETA [Suspect]
     Active Substance: PERTUZUMAB
     Route: 042
  22. PERJETA [Suspect]
     Active Substance: PERTUZUMAB
     Route: 042
  23. PERJETA [Suspect]
     Active Substance: PERTUZUMAB
     Route: 042
  24. PERJETA [Suspect]
     Active Substance: PERTUZUMAB
     Route: 042
  25. PERJETA [Suspect]
     Active Substance: PERTUZUMAB
     Route: 042
  26. PERJETA [Suspect]
     Active Substance: PERTUZUMAB
     Route: 042
  27. PERJETA [Suspect]
     Active Substance: PERTUZUMAB
     Route: 042
  28. PERJETA [Suspect]
     Active Substance: PERTUZUMAB
     Route: 042
  29. PERJETA [Suspect]
     Active Substance: PERTUZUMAB
     Route: 042
  30. PERJETA [Suspect]
     Active Substance: PERTUZUMAB
     Route: 042
  31. PERJETA [Suspect]
     Active Substance: PERTUZUMAB
     Route: 042
     Dates: start: 20240429
  32. HERCEPTIN [Suspect]
     Active Substance: TRASTUZUMAB
     Indication: HER2 positive breast cancer
     Dosage: DATE OF MOST RECENT DOSE 30/JAN/2014.
     Route: 042
     Dates: start: 201201, end: 201502
  33. HERCEPTIN [Suspect]
     Active Substance: TRASTUZUMAB
     Route: 042
     Dates: start: 20141218
  34. HERCEPTIN [Suspect]
     Active Substance: TRASTUZUMAB
     Route: 042
     Dates: start: 20160104, end: 2020
  35. HERCEPTIN [Suspect]
     Active Substance: TRASTUZUMAB
     Route: 042
     Dates: start: 20200513
  36. HERCEPTIN [Suspect]
     Active Substance: TRASTUZUMAB
     Route: 042
     Dates: start: 20200604, end: 20210729
  37. HERCEPTIN [Suspect]
     Active Substance: TRASTUZUMAB
     Route: 042
     Dates: start: 20210819
  38. HERCEPTIN [Suspect]
     Active Substance: TRASTUZUMAB
     Route: 042
  39. HERCEPTIN [Suspect]
     Active Substance: TRASTUZUMAB
     Route: 042
  40. HERCEPTIN [Suspect]
     Active Substance: TRASTUZUMAB
     Route: 042
  41. HERCEPTIN [Suspect]
     Active Substance: TRASTUZUMAB
     Route: 042
  42. HERCEPTIN [Suspect]
     Active Substance: TRASTUZUMAB
     Route: 042
  43. HERCEPTIN [Suspect]
     Active Substance: TRASTUZUMAB
     Route: 042
  44. HERCEPTIN [Suspect]
     Active Substance: TRASTUZUMAB
     Route: 042
  45. HERCEPTIN [Suspect]
     Active Substance: TRASTUZUMAB
     Route: 042
  46. HERCEPTIN [Suspect]
     Active Substance: TRASTUZUMAB
     Route: 042
  47. HERCEPTIN [Suspect]
     Active Substance: TRASTUZUMAB
     Route: 042
  48. HERCEPTIN [Suspect]
     Active Substance: TRASTUZUMAB
     Route: 042
  49. HERCEPTIN [Suspect]
     Active Substance: TRASTUZUMAB
     Route: 042
  50. XELODA [Suspect]
     Active Substance: CAPECITABINE
     Indication: Product used for unknown indication
     Dosage: START DATE -OCT-2013
     Route: 048
  51. KADCYLA [Suspect]
     Active Substance: ADO-TRASTUZUMAB EMTANSINE
     Indication: Breast cancer metastatic
     Dosage: START DATE: 27-FEB-2014
     Route: 042
     Dates: end: 20141127
  52. KADCYLA [Suspect]
     Active Substance: ADO-TRASTUZUMAB EMTANSINE
     Route: 042
     Dates: start: 20141218, end: 20150402
  53. KADCYLA [Suspect]
     Active Substance: ADO-TRASTUZUMAB EMTANSINE
     Route: 042
     Dates: start: 20160317
  54. KADCYLA [Suspect]
     Active Substance: ADO-TRASTUZUMAB EMTANSINE
     Route: 042
     Dates: start: 20140202, end: 20141127
  55. IVIGLOB EX [Suspect]
     Active Substance: HUMAN IMMUNOGLOBULIN G
     Indication: Product used for unknown indication
     Route: 042
  56. MAGNESIUM [Concomitant]
     Active Substance: MAGNESIUM
     Indication: Premedication
     Route: 042
  57. TAXOL [Concomitant]
     Active Substance: PACLITAXEL
     Indication: Product used for unknown indication
     Route: 065
     Dates: start: 201201, end: 2013
  58. TRAMADOL HYDROCHLORIDE [Concomitant]
     Active Substance: TRAMADOL HYDROCHLORIDE
     Indication: Pain
     Route: 065
     Dates: start: 20140220
  59. TRAMADOL HYDROCHLORIDE [Concomitant]
     Active Substance: TRAMADOL HYDROCHLORIDE
     Dates: start: 20140220
  60. BENADRYL [Concomitant]
     Active Substance: DIPHENHYDRAMINE HYDROCHLORIDE
     Route: 042
     Dates: start: 20140320, end: 20140813
  61. PACLITAXEL [Concomitant]
     Active Substance: PACLITAXEL
     Indication: Breast cancer
     Route: 065
     Dates: end: 201607
  62. PACLITAXEL [Concomitant]
     Active Substance: PACLITAXEL
     Dates: start: 201201, end: 2013
  63. HEPARIN [Concomitant]
     Active Substance: HEPARIN SODIUM
     Indication: Flushing
  64. TRAZIMERA [Concomitant]
     Active Substance: TRASTUZUMAB-QYYP

REACTIONS (59)
  - Pain [Not Recovered/Not Resolved]
  - Malignant neoplasm progression [Unknown]
  - Hepatitis [Unknown]
  - Asthenia [Not Recovered/Not Resolved]
  - Muscular weakness [Unknown]
  - Recurrent cancer [Unknown]
  - Breast disorder [Not Recovered/Not Resolved]
  - Sensitive skin [Not Recovered/Not Resolved]
  - Hyperaesthesia [Unknown]
  - Constipation [Not Recovered/Not Resolved]
  - Headache [Unknown]
  - Nausea [Unknown]
  - Pruritus [Unknown]
  - Blister [Unknown]
  - Dry skin [Unknown]
  - Skin fissures [Unknown]
  - Nausea [Not Recovered/Not Resolved]
  - Dry mouth [Not Recovered/Not Resolved]
  - Hypotension [Unknown]
  - Nasopharyngitis [Unknown]
  - Weight decreased [Unknown]
  - Vulvovaginal pain [Recovering/Resolving]
  - Epistaxis [Unknown]
  - Blood magnesium decreased [Unknown]
  - Headache [Unknown]
  - Blood pressure systolic decreased [Unknown]
  - Stress [Unknown]
  - Faeces soft [Unknown]
  - Hypotension [Unknown]
  - Blood pressure decreased [Unknown]
  - Blood pressure diastolic decreased [Unknown]
  - Heart rate decreased [Unknown]
  - Abdominal pain [Unknown]
  - Tumour marker increased [Not Recovered/Not Resolved]
  - Malaise [Unknown]
  - Dry throat [Unknown]
  - Sneezing [Unknown]
  - Fatigue [Unknown]
  - Hand dermatitis [Not Recovered/Not Resolved]
  - Electric shock sensation [Not Recovered/Not Resolved]
  - Gingival pain [Not Recovered/Not Resolved]
  - Seasonal allergy [Unknown]
  - Dysmenorrhoea [Unknown]
  - Eczema [Not Recovered/Not Resolved]
  - Epistaxis [Not Recovered/Not Resolved]
  - Paraesthesia [Not Recovered/Not Resolved]
  - Blood creatine phosphokinase increased [Not Recovered/Not Resolved]
  - Weight increased [Recovered/Resolved]
  - Urinary tract infection [Recovered/Resolved]
  - Palpitations [Unknown]
  - Blood test abnormal [Unknown]
  - Vascular access site haemorrhage [Unknown]
  - Sensitive skin [Not Recovered/Not Resolved]
  - Weight decreased [Unknown]
  - Constipation [Recovered/Resolved]
  - Myalgia [Unknown]
  - Fatigue [Unknown]
  - Blood iron decreased [Unknown]
  - Headache [Unknown]

NARRATIVE: CASE EVENT DATE: 20130101
